FAERS Safety Report 5195470-8 (Version None)
Quarter: 2006Q4

REPORT INFORMATION
  Report Type: 
  Country: None (occurrence: None)
  Receive Date: 20061230
  Receipt Date: 20061224
  Transmission Date: 20070319
  Serious: Yes (Death, Hospitalization)
  Sender: FDA-Public Use
  Company Number: IL-NOVOPROD-259535

PATIENT
  Age: 59 Year
  Sex: Male

DRUGS (2)
  1. NOVOSEVEN [Suspect]
     Indication: HAEMORRHAGE
     Dosage: 6 MG, QD
     Dates: start: 20061213
  2. COUMADIN [Concomitant]
     Indication: CEREBRAL HAEMORRHAGE

REACTIONS (1)
  - HYDROCEPHALUS [None]
